FAERS Safety Report 9736674 (Version 1)
Quarter: 2013Q4

REPORT INFORMATION
  Report Type: Spontaneous
  Country: US (occurrence: US)
  Receive Date: 20131206
  Receipt Date: 20131206
  Transmission Date: 20140711
  Serious: No
  Sender: FDA-Public Use
  Company Number: US-GILEAD-2009-0023304

PATIENT
  Sex: Female
  Weight: 74.84 kg

DRUGS (13)
  1. LETAIRIS [Suspect]
     Indication: PULMONARY ARTERIAL HYPERTENSION
     Route: 048
     Dates: start: 20090701
  2. WARFARIN [Concomitant]
  3. LASIX [Concomitant]
  4. LISINOPRIL [Concomitant]
  5. ALLOPURINOL [Concomitant]
  6. PROTONIX [Concomitant]
  7. ZOLOFT [Concomitant]
  8. IMDUR [Concomitant]
  9. QVAR [Concomitant]
  10. LEVEMIR [Concomitant]
  11. CRESTOR [Concomitant]
  12. NITROGLYCERIN [Concomitant]
  13. XOPENEX [Concomitant]

REACTIONS (2)
  - Fluid retention [Unknown]
  - Dyspnoea [Unknown]
